FAERS Safety Report 17411954 (Version 2)
Quarter: 2020Q4

REPORT INFORMATION
  Report Type: Spontaneous
  Country: US (occurrence: US)
  Receive Date: 20200213
  Receipt Date: 20201224
  Transmission Date: 20210113
  Serious: No
  Sender: FDA-Public Use
  Company Number: US-TEVA-2020-US-1176456

PATIENT
  Age: 25 Year
  Sex: Female

DRUGS (1)
  1. CINQAIR [Suspect]
     Active Substance: RESLIZUMAB
     Indication: ASTHMA
     Route: 042

REACTIONS (3)
  - Pruritus [Unknown]
  - Urticaria [Unknown]
  - Incorrect dose administered [Unknown]
